FAERS Safety Report 10166810 (Version 1)
Quarter: 2014Q2

REPORT INFORMATION
  Report Type: Spontaneous
  Country: US (occurrence: None)
  Receive Date: 20140508
  Receipt Date: 20140508
  Transmission Date: 20141212
  Serious: Yes (Death, Other)
  Sender: FDA-Public Use
  Company Number: 2319609

PATIENT
  Age: 87 Year
  Sex: Male
  Weight: 77.27 kg

DRUGS (11)
  1. NALOXONE HYDROCHLORIDE [Suspect]
     Indication: PRODUCT USED FOR UNKNOWN INDICATION
     Route: 042
     Dates: start: 20140203, end: 20140203
  2. CARDURA [Concomitant]
  3. COSOPT [Concomitant]
  4. WARFARIN [Concomitant]
  5. DIOVAN [Concomitant]
  6. LASIX /00032601/ [Concomitant]
  7. DULCOLAX /00064401/ [Concomitant]
  8. MINOXIDIL [Concomitant]
  9. FLUID [Concomitant]
  10. OTHER HYPNOTICS AND SEDATIVES [Concomitant]
  11. MORPHINE [Concomitant]

REACTIONS (7)
  - Bradycardia [None]
  - Tachycardia [None]
  - Cardiac arrest [None]
  - Overdose [None]
  - Pain [None]
  - Screaming [None]
  - Incorrect drug administration rate [None]
